FAERS Safety Report 25690489 (Version 2)
Quarter: 2025Q3

REPORT INFORMATION
  Report Type: Spontaneous
  Country: US (occurrence: US)
  Receive Date: 20250818
  Receipt Date: 20250823
  Transmission Date: 20251020
  Serious: No
  Sender: AMGEN
  Company Number: US-AMGEN-USASP2025163094

PATIENT
  Sex: Female

DRUGS (2)
  1. OTEZLA [Suspect]
     Active Substance: APREMILAST
     Indication: Psoriasis
     Dosage: 30 MILLIGRAM, BID
     Route: 048
  2. OTEZLA [Suspect]
     Active Substance: APREMILAST
     Dosage: 30 MILLIGRAM, BID
     Route: 048

REACTIONS (7)
  - Skin haemorrhage [Unknown]
  - Abdominal discomfort [Recovered/Resolved]
  - Malaise [Unknown]
  - Therapy non-responder [Unknown]
  - Rash pruritic [Unknown]
  - Skin discomfort [Unknown]
  - Skin fissures [Unknown]
